FAERS Safety Report 15314906 (Version 1)
Quarter: 2018Q3

REPORT INFORMATION
  Report Type: Spontaneous
  Country: US (occurrence: US)
  Receive Date: 20180815
  Receipt Date: 20180815
  Transmission Date: 20181010
  Serious: Yes (Hospitalization)
  Sender: FDA-Public Use
  Company Number: None

PATIENT
  Age: 66 Year
  Sex: Female
  Weight: 72.45 kg

DRUGS (2)
  1. CATHFLO ACTIVASE [Concomitant]
     Active Substance: ALTEPLASE
     Dates: start: 20180814, end: 20180814
  2. CATHFLO ACTIVASE [Suspect]
     Active Substance: ALTEPLASE
     Indication: COMPLICATION ASSOCIATED WITH DEVICE
     Route: 042
     Dates: start: 20180814, end: 20180814

REACTIONS (9)
  - Headache [None]
  - Hypersensitivity [None]
  - Anaphylactic reaction [None]
  - Dysphagia [None]
  - Nausea [None]
  - Dyspnoea [None]
  - Throat tightness [None]
  - Cough [None]
  - Vomiting [None]

NARRATIVE: CASE EVENT DATE: 20180814
